FAERS Safety Report 7437936-3 (Version None)
Quarter: 2011Q2

REPORT INFORMATION
  Report Type: 
  Country: None (occurrence: None)
  Receive Date: 20110421
  Receipt Date: 20110421
  Transmission Date: 20111010
  Serious: Yes (Hospitalization)
  Sender: FDA-Public Use
  Company Number: None

PATIENT
  Age: 66 Year
  Sex: Male
  Weight: 73.8 kg

DRUGS (2)
  1. BEXAROTENE [Suspect]
     Indication: ACUTE MYELOID LEUKAEMIA
     Dosage: 200 MG/M2 P.O.
     Route: 048
     Dates: start: 20110412
  2. DECITABINE [Suspect]
     Dosage: 20 MG/M2 IV X5 DAYS
     Route: 042

REACTIONS (3)
  - DACRYOCANALICULITIS [None]
  - CELLULITIS ORBITAL [None]
  - FEBRILE NEUTROPENIA [None]
